FAERS Safety Report 13452439 (Version 2)
Quarter: 2017Q2

REPORT INFORMATION
  Report Type: Report from Study
  Country: US (occurrence: US)
  Receive Date: 20170418
  Receipt Date: 20170503
  Transmission Date: 20170830
  Serious: Yes (Other)
  Sender: FDA-Public Use
  Company Number: US-JNJFOC-20170413676

PATIENT
  Sex: Male
  Weight: 131.09 kg

DRUGS (7)
  1. CANASA [Concomitant]
     Active Substance: MESALAMINE
     Route: 054
  2. MELATONIN [Concomitant]
     Active Substance: MELATONIN
     Route: 048
  3. AMITRIPTYLINE [Concomitant]
     Active Substance: AMITRIPTYLINE
     Route: 048
     Dates: start: 20161014
  4. PENTASA [Concomitant]
     Active Substance: MESALAMINE
     Route: 048
  5. VENTOLIN HFA [Concomitant]
     Active Substance: ALBUTEROL SULFATE
     Route: 048
  6. CORTIFOAM [Concomitant]
     Active Substance: HYDROCORTISONE ACETATE
     Route: 054
     Dates: start: 20160127
  7. REMICADE [Suspect]
     Active Substance: INFLIXIMAB
     Indication: PRODUCT USED FOR UNKNOWN INDICATION
     Dosage: STRENGTH 100MG
     Route: 042

REACTIONS (4)
  - Haematochezia [Unknown]
  - Hypersensitivity [Unknown]
  - Oropharyngeal pain [Unknown]
  - Faeces hard [Unknown]
